FAERS Safety Report 5494927-X (Version None)
Quarter: 2007Q4

REPORT INFORMATION
  Report Type: 
  Country: None (occurrence: None)
  Receive Date: 20071024
  Receipt Date: 20071018
  Transmission Date: 20080405
  Serious: Yes (Life-Threatening, Other)
  Sender: FDA-Public Use
  Company Number: A0674715A

PATIENT
  Age: 70 Year
  Sex: Male
  Weight: 75.9 kg

DRUGS (7)
  1. AVODART [Suspect]
     Indication: BENIGN PROSTATIC HYPERPLASIA
     Dosage: 1CAP PER DAY
     Route: 048
  2. FLOMAX [Suspect]
     Indication: DRUG USE FOR UNKNOWN INDICATION
     Route: 065
  3. LISINOPRIL [Concomitant]
  4. AMARYL [Concomitant]
  5. TOPROL-XL [Concomitant]
  6. LOPID [Concomitant]
     Dosage: 600MG TWICE PER DAY
  7. RANITIDINE HCL [Concomitant]
     Dosage: 150MG TWICE PER DAY

REACTIONS (3)
  - ANAPHYLACTIC REACTION [None]
  - DRUG INEFFECTIVE [None]
  - SWOLLEN TONGUE [None]
